FAERS Safety Report 18128255 (Version 2)
Quarter: 2021Q2

REPORT INFORMATION
  Report Type: Report from Study
  Country: US (occurrence: US)
  Receive Date: 20200810
  Receipt Date: 20210505
  Transmission Date: 20210717
  Serious: Yes (Other)
  Sender: FDA-Public Use
  Company Number: US-BIOGEN-2020BI00907299

PATIENT
  Age: 28 Year
  Sex: Female
  Weight: 78.09 kg

DRUGS (7)
  1. DEXTROAMPHETAMINE ? AMPHETAMINE [Concomitant]
     Indication: PRODUCT USED FOR UNKNOWN INDICATION
     Dosage: ER 25 MG 24 HR
     Route: 065
     Dates: start: 20210408
  2. TECFIDERA [Suspect]
     Active Substance: DIMETHYL FUMARATE
     Dosage: MAINTENANCE DOSE
     Route: 065
  3. FLUZONE QUAD [Concomitant]
     Indication: PRODUCT USED FOR UNKNOWN INDICATION
     Dosage: 60 MCG (15 MCG X 4)/0.5 ML IM SYRINGE
     Route: 030
     Dates: start: 20200910, end: 2021
  4. ADDERALL [Suspect]
     Active Substance: AMPHETAMINE ASPARTATE\AMPHETAMINE SULFATE\DEXTROAMPHETAMINE SACCHARATE\DEXTROAMPHETAMINE SULFATE
     Indication: PRODUCT USED FOR UNKNOWN INDICATION
     Route: 065
  5. TECFIDERA [Suspect]
     Active Substance: DIMETHYL FUMARATE
     Indication: MULTIPLE SCLEROSIS
     Dosage: STARTING DOSE
     Route: 065
     Dates: start: 20170530
  6. DEXTROAMPHETAMINE ? AMPHETAMINE [Concomitant]
     Dosage: ER 30 MG 24 HR
     Route: 065
     Dates: start: 20151123
  7. LEVETIRACETAM. [Concomitant]
     Active Substance: LEVETIRACETAM
     Indication: PRODUCT USED FOR UNKNOWN INDICATION
     Dosage: 100 MG/ML TAKE 7.5 ML TWICE A DAY
     Route: 048
     Dates: start: 20210129

REACTIONS (7)
  - Memory impairment [Unknown]
  - Status epilepticus [Unknown]
  - Sedation [Unknown]
  - Burning sensation [Unknown]
  - Bradyphrenia [Unknown]
  - Dysphagia [Unknown]
  - Tension [Unknown]

NARRATIVE: CASE EVENT DATE: 20190705
